FAERS Safety Report 21589224 (Version 1)
Quarter: 2022Q4

REPORT INFORMATION
  Report Type: Report from Study
  Country: US (occurrence: US)
  Receive Date: 20221114
  Receipt Date: 20221114
  Transmission Date: 20230113
  Serious: No
  Sender: FDA-Public Use
  Company Number: US-ABBVIE-22K-163-4503339-00

PATIENT
  Age: 61 Year
  Sex: Female

DRUGS (2)
  1. SKYRIZI [Suspect]
     Active Substance: RISANKIZUMAB-RZAA
     Indication: Psoriasis
     Dosage: FORM STRENGTH150MG?WEEK 0
     Route: 058
     Dates: start: 20220804
  2. SKYRIZI [Suspect]
     Active Substance: RISANKIZUMAB-RZAA
     Dosage: FORM STRENGTH150MG? WEEK 4 AND EVERY 12 WEEKS THEREAFTER
     Route: 058
     Dates: start: 20220804

REACTIONS (5)
  - Bone pain [Recovering/Resolving]
  - Erythema [Not Recovered/Not Resolved]
  - Pain in extremity [Recovering/Resolving]
  - Psoriasis [Recovering/Resolving]
  - Scratch [Unknown]

NARRATIVE: CASE EVENT DATE: 20220801
